FAERS Safety Report 14667369 (Version 1)
Quarter: 2018Q1

REPORT INFORMATION
  Report Type: Spontaneous
  Country: FR (occurrence: FR)
  Receive Date: 20180322
  Receipt Date: 20180322
  Transmission Date: 20180509
  Serious: Yes (Other)
  Sender: FDA-Public Use
  Company Number: FR-MERCK KGAA-2044287

PATIENT
  Sex: Male

DRUGS (1)
  1. NOVOTHYROX [Suspect]
     Active Substance: LEVOTHYROXINE SODIUM
     Indication: PRODUCT USED FOR UNKNOWN INDICATION

REACTIONS (21)
  - Suicidal ideation [Recovering/Resolving]
  - Visual impairment [Recovering/Resolving]
  - Skin discomfort [Recovering/Resolving]
  - Alopecia [Recovering/Resolving]
  - Weight decreased [Recovering/Resolving]
  - Vitiligo [Recovering/Resolving]
  - Irritability [Recovering/Resolving]
  - Cognitive disorder [Recovering/Resolving]
  - Ill-defined disorder [Recovering/Resolving]
  - Fatigue [Recovering/Resolving]
  - Disturbance in attention [Recovering/Resolving]
  - Loss of personal independence in daily activities [Recovering/Resolving]
  - Psychiatric symptom [Recovering/Resolving]
  - Depressed mood [Recovering/Resolving]
  - Loss of libido [Recovering/Resolving]
  - Social avoidant behaviour [Recovering/Resolving]
  - Social anxiety disorder [Recovering/Resolving]
  - Arthralgia [Recovering/Resolving]
  - Asthenia [Recovering/Resolving]
  - Disorientation [Recovering/Resolving]
  - Apathy [Recovering/Resolving]
